FAERS Safety Report 6528051-1 (Version None)
Quarter: 2010Q1

REPORT INFORMATION
  Report Type: 
  Country: None (occurrence: None)
  Receive Date: 20100106
  Receipt Date: 20091231
  Transmission Date: 20100710
  Serious: Yes (Hospitalization)
  Sender: FDA-Public Use
  Company Number: US-BRISTOL-MYERS SQUIBB COMPANY-14919005

PATIENT
  Age: 51 Year
  Sex: Female
  Weight: 59 kg

DRUGS (25)
  1. ERBITUX [Suspect]
     Indication: ANAL CANCER
     Dates: start: 20091116, end: 20091208
  2. CISPLATIN [Suspect]
     Indication: ANAL CANCER
     Dates: start: 20091116, end: 20091116
  3. FLUOROURACIL [Suspect]
     Indication: ANAL CANCER
     Dates: start: 20091116, end: 20091120
  4. RADIATION THERAPY [Suspect]
     Indication: ANAL CANCER
     Dosage: 1 D.F= 34.2 GY NUMBER OF FRACTIONS: 19 NUMBER OF ELASPSED DAYS: 63
     Dates: end: 20091214
  5. CHLORHEXIDINE GLUCONATE [Concomitant]
  6. CIPROFLOXACIN [Concomitant]
  7. CLINDAMYCIN [Concomitant]
  8. DICLOXACILLIN [Concomitant]
  9. FAMOTIDINE [Concomitant]
  10. FLUCONAZOLE [Concomitant]
  11. HEPARIN [Concomitant]
  12. LASIX [Concomitant]
  13. MAALOX [Concomitant]
  14. MAGNESIUM SULFATE [Concomitant]
  15. MORPHINE [Concomitant]
  16. MULTI-VITAMIN [Concomitant]
  17. MUPIROCIN [Concomitant]
  18. OCTREOTIDE ACETATE [Concomitant]
  19. ONDANSETRON [Concomitant]
  20. PANTOPRAZOLE [Concomitant]
  21. POTASSIUM PHOSPHATES [Concomitant]
  22. PSYLLIUM [Concomitant]
  23. SILVER SULFADIAZINE [Concomitant]
  24. VALACYCLOVIR [Concomitant]
  25. ZOSYN [Concomitant]

REACTIONS (5)
  - ABDOMINAL PAIN [None]
  - DIARRHOEA [None]
  - FATIGUE [None]
  - NAUSEA [None]
  - URINARY TRACT INFECTION [None]
